FAERS Safety Report 6476837-4 (Version None)
Quarter: 2009Q4

REPORT INFORMATION
  Report Type: 
  Country: None (occurrence: None)
  Receive Date: 20091204
  Receipt Date: 20091204
  Transmission Date: 20100525
  Serious: Yes (Death)
  Sender: FDA-Public Use
  Company Number: None

PATIENT
  Age: 24 Year
  Sex: Male
  Weight: 54 kg

DRUGS (2)
  1. MEFLOQUINE HCL [Suspect]
     Indication: MALARIA PROPHYLAXIS
     Dosage: 250 MG ONCE A WEEK PO
     Route: 048
     Dates: start: 20071217, end: 20080125
  2. LANTUS [Concomitant]

REACTIONS (1)
  - EPISTAXIS [None]
